FAERS Safety Report 23739533 (Version 2)
Quarter: 2024Q2

REPORT INFORMATION
  Report Type: Other
  Country: CA (occurrence: None)
  Receive Date: 20240413
  Receipt Date: 20240510
  Transmission Date: 20240715
  Serious: No
  Sender: FDA-Public Use
  Company Number: CA-ROCHE-3542700

PATIENT
  Sex: Female

DRUGS (2)
  1. OCREVUS [Suspect]
     Active Substance: OCRELIZUMAB
     Indication: Primary progressive multiple sclerosis
     Dosage: 300 MG AT DAY 0 AND 14, THEN 600 MG EVERY 6 MONTHS
     Route: 042
     Dates: start: 20231019
  2. GUAIFENESIN\MENTHOL [Suspect]
     Active Substance: GUAIFENESIN\MENTHOL
     Indication: Product used for unknown indication
     Route: 065

REACTIONS (9)
  - Influenza [Recovering/Resolving]
  - Pain in jaw [Recovering/Resolving]
  - Fatigue [Unknown]
  - Road traffic accident [Unknown]
  - Dry mouth [Unknown]
  - Dry eye [Unknown]
  - Dry skin [Unknown]
  - Limb discomfort [Not Recovered/Not Resolved]
  - Off label use [Unknown]
